FAERS Safety Report 17092736 (Version 1)
Quarter: 2019Q4

REPORT INFORMATION
  Report Type: Spontaneous
  Country: ES (occurrence: ES)
  Receive Date: 20191129
  Receipt Date: 20191129
  Transmission Date: 20200122
  Serious: Yes (Hospitalization)
  Sender: FDA-Public Use
  Company Number: ES-TEVA-2019-ES-1143059

PATIENT
  Age: 71 Year
  Sex: Male

DRUGS (6)
  1. FUROSEMIDA (1615A) [Suspect]
     Active Substance: FUROSEMIDE
     Dates: start: 2017
  2. RAMIPRIL (2497A) [Suspect]
     Active Substance: RAMIPRIL
     Dosage: 5 MILLIGRAM PER DAY
     Dates: start: 20180602, end: 20180630
  3. FENTANILO (1543A) [Concomitant]
     Active Substance: FENTANYL
     Dates: start: 2018
  4. ESPIRONOLACTONA (326A) [Suspect]
     Active Substance: SPIRONOLACTONE
     Dosage: 25 MILLIGRAM PER DAY
     Dates: start: 20160510, end: 20180630
  5. DILTIAZEM (3735A) [Suspect]
     Active Substance: DILTIAZEM
     Indication: HYPERTENSION
     Dosage: 60 MILLIGRAM PER DAY
     Route: 048
     Dates: start: 20170719, end: 20180630
  6. DOXAZOSINA (2387A) [Concomitant]
     Active Substance: DOXAZOSIN MESYLATE

REACTIONS (3)
  - Hypokalaemia [Recovered/Resolved]
  - Atrioventricular block [Recovered/Resolved]
  - Atrial fibrillation [Recovered/Resolved]

NARRATIVE: CASE EVENT DATE: 20180624
